FAERS Safety Report 21839265 (Version 1)
Quarter: 2023Q1

REPORT INFORMATION
  Report Type: Spontaneous
  Country: GB (occurrence: GB)
  Receive Date: 20230109
  Receipt Date: 20230109
  Transmission Date: 20230418
  Serious: Yes (Other)
  Sender: FDA-Public Use
  Company Number: 816359_0000834376_000000000086767

PATIENT
  Sex: Male

DRUGS (1)
  1. CLOZARIL [Suspect]
     Active Substance: CLOZAPINE
     Indication: Schizophrenia
     Dosage: UNK
     Route: 048
     Dates: start: 20151202

REACTIONS (4)
  - Schizophrenia [Unknown]
  - Cerebrovascular accident [Unknown]
  - Seizure [Unknown]
  - Therapy interrupted [Unknown]
